FAERS Safety Report 13805945 (Version 1)
Quarter: 2017Q3

REPORT INFORMATION
  Report Type: Spontaneous
  Country: GB (occurrence: GB)
  Receive Date: 20170728
  Receipt Date: 20170728
  Transmission Date: 20171127
  Serious: Yes (Other)
  Sender: FDA-Public Use
  Company Number: GB-VELOXIS PHARMACEUTICALS-2023872

PATIENT
  Sex: Male

DRUGS (5)
  1. ENVARSUS XR [Suspect]
     Active Substance: TACROLIMUS
     Indication: PRODUCT USED FOR UNKNOWN INDICATION
  2. CYCLOSPORINE. [Suspect]
     Active Substance: CYCLOSPORINE
  3. PENICILLIN [Concomitant]
     Active Substance: PENICILLIN
  4. ACYCLOVIR. [Concomitant]
     Active Substance: ACYCLOVIR
  5. NYSTATIN. [Concomitant]
     Active Substance: NYSTATIN

REACTIONS (8)
  - Incorrect dose administered [Unknown]
  - Concomitant disease aggravated [Recovering/Resolving]
  - Chronic graft versus host disease [Recovering/Resolving]
  - Acute kidney injury [Unknown]
  - Oesophagitis [Unknown]
  - Oesophageal pain [Unknown]
  - Rash erythematous [Unknown]
  - Diarrhoea [Unknown]

NARRATIVE: CASE EVENT DATE: 201506
